FAERS Safety Report 9804784 (Version 1)
Quarter: 2014Q1

REPORT INFORMATION
  Report Type: Spontaneous
  Country: US (occurrence: US)
  Receive Date: 20140108
  Receipt Date: 20140108
  Transmission Date: 20141002
  Serious: No
  Sender: FDA-Public Use
  Company Number: US-TEVA-454973USA

PATIENT
  Sex: Male

DRUGS (2)
  1. TREANDA [Suspect]
     Indication: DISEASE PROGRESSION
     Dates: start: 2013
  2. RITUXIMAB [Concomitant]

REACTIONS (2)
  - Rash pruritic [Unknown]
  - Local swelling [Unknown]
